FAERS Safety Report 4549451-5 (Version None)
Quarter: 2005Q1

REPORT INFORMATION
  Report Type: 
  Country: None (occurrence: None)
  Receive Date: 20050110
  Receipt Date: 20050110
  Transmission Date: 20050727
  Serious: No
  Sender: FDA-Public Use
  Company Number: None

PATIENT
  Sex: Male

DRUGS (4)
  1. CELEBREX [Suspect]
     Indication: RECTAL CANCER
     Dosage: 400 MG BID ORAL
     Route: 048
     Dates: start: 20040930, end: 20050104
  2. XELODA [Suspect]
     Indication: RECTAL CANCER
     Dosage: 1150MG BID ORAL
     Route: 048
     Dates: start: 20040930, end: 20041108
  3. IRINOTECAN [Concomitant]
  4. RADIATION [Concomitant]

REACTIONS (8)
  - ARTERIAL OCCLUSIVE DISEASE [None]
  - ARTHRALGIA [None]
  - ATHEROSCLEROSIS [None]
  - FATIGUE [None]
  - FEMORAL ARTERY OCCLUSION [None]
  - INTERMITTENT CLAUDICATION [None]
  - MUSCULOSKELETAL STIFFNESS [None]
  - PAIN IN EXTREMITY [None]
